FAERS Safety Report 5832933-3 (Version None)
Quarter: 2008Q3

REPORT INFORMATION
  Report Type: 
  Country: None (occurrence: None)
  Receive Date: 20080804
  Receipt Date: 20080722
  Transmission Date: 20090109
  Serious: No
  Sender: FDA-Public Use
  Company Number: AU-BOEHRINGER INGELHEIM GMBH, GERMANY-2008-BP-11762AU

PATIENT
  Sex: Male

DRUGS (1)
  1. VIRAMUNE [Suspect]
     Route: 048

REACTIONS (3)
  - HEPATOTOXICITY [None]
  - PYREXIA [None]
  - RASH [None]
